FAERS Safety Report 8728652 (Version 4)
Quarter: 2012Q4

REPORT INFORMATION
  Report Type: 
  Country: CA (occurrence: CA)
  Receive Date: 20120817
  Receipt Date: 20121114
  Transmission Date: 20130627
  Serious: Yes (Death, Hospitalization, Other)
  Sender: FDA-Public Use
  Company Number: PHHY2012CA070369

PATIENT
  Age: 70 Year
  Sex: Female

DRUGS (2)
  1. SANDOSTATIN LAR [Suspect]
     Indication: PANCREATIC CARCINOMA
     Dosage: 30 mg, once a month
     Route: 030
     Dates: start: 20120522, end: 20121016
  2. CHEMOTHERAPEUTICS [Concomitant]

REACTIONS (10)
  - Death [Fatal]
  - Body temperature increased [Recovering/Resolving]
  - Malignant neoplasm progression [Unknown]
  - Memory impairment [Unknown]
  - Diarrhoea [Unknown]
  - Disorientation [Unknown]
  - Pain [Unknown]
  - Flatulence [Unknown]
  - Constipation [Not Recovered/Not Resolved]
  - Abnormal faeces [Not Recovered/Not Resolved]
